FAERS Safety Report 9804980 (Version 2)
Quarter: 2014Q1

REPORT INFORMATION
  Report Type: Spontaneous
  Country: US (occurrence: US)
  Receive Date: 20140109
  Receipt Date: 20140109
  Transmission Date: 20141002
  Serious: Yes (Other)
  Sender: FDA-Public Use
  Company Number: US-PFIZER INC-2013167429

PATIENT
  Age: 63 Year
  Sex: Female
  Weight: 102.4 kg

DRUGS (16)
  1. LYRICA [Suspect]
     Indication: FIBROMYALGIA
     Dosage: 75 MG, 2X/DAY
     Route: 048
     Dates: start: 20130125
  2. PAXIL [Concomitant]
     Dosage: UNK
  3. LEVOTHYROXINE [Concomitant]
     Dosage: 50 UG, 1X/DAY
  4. POTASSIUM CHLORIDE [Concomitant]
     Dosage: 40 MEQ, EVERY OTHER DAY
  5. LASIX [Concomitant]
     Dosage: 40 MG, EVERY OTHER DAY
  6. QUINAPRIL [Concomitant]
     Dosage: 20 MG, UNK
  7. OMEPRAZOLE [Concomitant]
     Dosage: 40 MG, UNK
  8. METFORMIN ER [Concomitant]
     Dosage: 500 MG, 2X/DAY
  9. AMITRIPTYLINE [Concomitant]
     Dosage: 75 MG, 1X/DAY AT BED TIME
  10. ALLOPURINOL [Concomitant]
     Dosage: 150 MG, 1X/DAY
  11. FLEXERIL [Concomitant]
     Indication: MUSCLE SPASMS
     Dosage: 10 MG, 3X/DAY
  12. FLEXERIL [Concomitant]
     Indication: TREMOR
  13. TRAMADOL [Concomitant]
     Indication: PAIN
     Dosage: 50 MG, SOMETIMES TWO CAPSULES A DAY OR SOMETIMES THREE TO FOUR CAPSULES IN A DAY
  14. TIMOLOL [Concomitant]
     Dosage: (0.5% ONE DROP IN BOTH EYES EVERY MORNING), 1X/DAY
     Route: 047
  15. XALATAN [Concomitant]
     Dosage: ONE DROP IN BOTH EYES, 1X/DAY (EVERY EVENING)
     Route: 047
  16. LIVALO [Concomitant]
     Dosage: 2 MG, 1X/DAY

REACTIONS (4)
  - Limb injury [Unknown]
  - Arthropathy [Unknown]
  - Fall [Unknown]
  - Lipids increased [Unknown]
